FAERS Safety Report 22277261 (Version 1)
Quarter: 2023Q2

REPORT INFORMATION
  Report Type: Spontaneous
  Country: US (occurrence: US)
  Receive Date: 20230503
  Receipt Date: 20230503
  Transmission Date: 20230721
  Serious: No
  Sender: FDA-Public Use
  Company Number: US-Nobelpharma America, LLC-NPA-2023-00693

PATIENT
  Age: 24 Year
  Sex: Female

DRUGS (1)
  1. HYFTOR [Suspect]
     Active Substance: SIROLIMUS
     Indication: Benign neoplasm
     Dosage: DOSING INFORMATION: UNKNOWN?THERAPY START DATE/END DATE: UNKNOWN?NUMBER OF DIVIDED DOSES: UNKNOWN
     Route: 061

REACTIONS (3)
  - Drug ineffective for unapproved indication [None]
  - Rash erythematous [None]
  - Off label use [None]
